FAERS Safety Report 4374482-8 (Version None)
Quarter: 2004Q2

REPORT INFORMATION
  Report Type: 
  Country: None (occurrence: None)
  Receive Date: 20040603
  Receipt Date: 20040513
  Transmission Date: 20050107
  Serious: Yes (Hospitalization)
  Sender: FDA-Public Use
  Company Number: EWC040539292

PATIENT
  Age: 49 Year
  Sex: Male

DRUGS (3)
  1. HUMALOG [Suspect]
     Indication: DIABETES MELLITUS
     Dosage: 8 IU/2 DAY
     Dates: start: 19980101
  2. LESCOL (FLUVASTATINE SODIUM) [Suspect]
     Indication: RENAL TRANSPLANT
     Dosage: 8 MG/1 DAY
     Dates: start: 20021008
  3. INSULIN INSULATARD (INSULIN INJECTION, ISOPHANE) [Concomitant]

REACTIONS (2)
  - HYPOGLYCAEMIA [None]
  - LOSS OF CONSCIOUSNESS [None]
